FAERS Safety Report 9297859 (Version 1)
Quarter: 2013Q2

REPORT INFORMATION
  Report Type: Report from Study
  Country: AR (occurrence: AR)
  Receive Date: 20130520
  Receipt Date: 20130520
  Transmission Date: 20140414
  Serious: Yes (Hospitalization, Other)
  Sender: FDA-Public Use
  Company Number: PHHY2013AR049959

PATIENT
  Age: 73 Year
  Sex: Female

DRUGS (2)
  1. ONBREZ [Suspect]
     Indication: RESPIRATORY DISORDER
     Dosage: 150 UG, DAILY
     Dates: start: 201301
  2. ONBREZ [Suspect]
     Indication: OFF LABEL USE

REACTIONS (2)
  - Upper limb fracture [Unknown]
  - Fall [Unknown]
